FAERS Safety Report 5094027-7 (Version None)
Quarter: 2006Q3

REPORT INFORMATION
  Report Type: 
  Country: None (occurrence: None)
  Receive Date: 20060728
  Receipt Date: 20060508
  Transmission Date: 20061208
  Serious: No
  Sender: FDA-Public Use
  Company Number: 253050

PATIENT
  Age: 73 Year
  Sex: Female

DRUGS (4)
  1. LEVEMIR [Suspect]
     Indication: INSULIN-REQUIRING TYPE II DIABETES MELLITUS
     Dosage: 15 IU, QD, SUBCUTANEOUS
     Route: 058
  2. WELLBUTRIN [Concomitant]
  3. PROZAC [Concomitant]
  4. METFORMIN HCL [Concomitant]

REACTIONS (2)
  - DYSGEUSIA [None]
  - FATIGUE [None]
